FAERS Safety Report 10038488 (Version 1)
Quarter: 2014Q1

REPORT INFORMATION
  Report Type: Spontaneous
  Country: US (occurrence: US)
  Receive Date: 20140326
  Receipt Date: 20140326
  Transmission Date: 20141002
  Serious: No
  Sender: FDA-Public Use
  Company Number: US-B.I. PHARMACEUTICALS,INC./RIDGEFIELD-2014-BI-12271BP

PATIENT
  Age: 79 Year
  Sex: Female

DRUGS (5)
  1. AGGRENOX [Suspect]
     Indication: CEREBROVASCULAR ACCIDENT PROPHYLAXIS
     Dosage: STRENGTH: 25 MG / 200 MG; DAILY DOSE: 50 MG/ 400 MG
     Route: 048
     Dates: start: 2011
  2. LIPITOR [Concomitant]
     Dosage: UKN
     Route: 048
  3. ARIMIDEX [Concomitant]
     Dosage: UKN
     Route: 048
  4. NORVASC [Concomitant]
     Dosage: UKN
     Route: 048
  5. NEXIUM [Concomitant]
     Dosage: UKN
     Route: 048

REACTIONS (1)
  - Nodule [Not Recovered/Not Resolved]
